FAERS Safety Report 4712018-X (Version None)
Quarter: 2005Q2

REPORT INFORMATION
  Report Type: 
  Country: None (occurrence: None)
  Receive Date: 20050629
  Receipt Date: 20050411
  Transmission Date: 20051028
  Serious: No
  Sender: FDA-Public Use
  Company Number: 05P-163-0297042-00

PATIENT
  Age: 66 Year
  Sex: Female
  Weight: 98 kg

DRUGS (4)
  1. HUMIRA [Suspect]
     Indication: RHEUMATOID ARTHRITIS
     Dosage: 40 MG, 1 IN 2 WK, SUBCUTANEOUS
     Route: 058
     Dates: start: 20040101, end: 20050301
  2. GABAPENTIN [Concomitant]
  3. LEVOTHYROXINE SODIUM [Concomitant]
  4. ALPRAZOLAM [Concomitant]

REACTIONS (5)
  - FATIGUE [None]
  - HYPOAESTHESIA [None]
  - PNEUMONIA [None]
  - VISUAL ACUITY REDUCED [None]
  - VISUAL DISTURBANCE [None]
